FAERS Safety Report 5703704-3 (Version None)
Quarter: 2008Q2

REPORT INFORMATION
  Report Type: 
  Country: None (occurrence: None)
  Receive Date: 20080413
  Receipt Date: 20080331
  Transmission Date: 20081010
  Serious: Yes (Other)
  Sender: FDA-Public Use
  Company Number: PHBS2008IL03858

PATIENT
  Age: 23 Year
  Sex: Female

DRUGS (1)
  1. IMATINIB [Suspect]
     Indication: CHRONIC MYELOID LEUKAEMIA
     Dosage: 400 MG/D
     Route: 065

REACTIONS (3)
  - BONE MARROW DISORDER [None]
  - BONE MARROW FAILURE [None]
  - BONE MARROW HARVEST FAILURE [None]
